FAERS Safety Report 24757434 (Version 1)
Quarter: 2024Q4

REPORT INFORMATION
  Report Type: Spontaneous
  Country: US (occurrence: US)
  Receive Date: 20241220
  Receipt Date: 20241220
  Transmission Date: 20250114
  Serious: No
  Sender: TEVA
  Company Number: US-TEVA-VS-3272424

PATIENT
  Age: 34 Year

DRUGS (1)
  1. BUTALBITAL, ACETAMINOPHEN, AND CAFFEINE [Suspect]
     Active Substance: ACETAMINOPHEN\BUTALBITAL\CAFFEINE
     Indication: Migraine
     Dosage: (BUTALBITAL 50MG, ACETAMINOPHEN 300MG + CAFFEINE 40MG), SECOND DOSE ADMINISTERED ON  2024-12-01
     Route: 065
     Dates: start: 20241130

REACTIONS (8)
  - Malaise [Unknown]
  - Vomiting [Unknown]
  - Pruritus [Unknown]
  - Abdominal pain upper [Unknown]
  - Urticaria [Unknown]
  - Fatigue [Unknown]
  - Disturbance in attention [Unknown]
  - Nausea [Unknown]
